FAERS Safety Report 6029514-8 (Version None)
Quarter: 2009Q1

REPORT INFORMATION
  Report Type: 
  Country: None (occurrence: None)
  Receive Date: 20090106
  Receipt Date: 20090102
  Transmission Date: 20090719
  Serious: Yes (Hospitalization, Disabling)
  Sender: FDA-Public Use
  Company Number: DE-AMGEN-UK320632

PATIENT
  Age: 80 Year
  Sex: Female
  Weight: 51.4 kg

DRUGS (7)
  1. MIMPARA [Suspect]
     Indication: HYPERPARATHYROIDISM PRIMARY
     Route: 048
     Dates: start: 20081007
  2. OSTEOPLUS [Concomitant]
     Route: 048
     Dates: start: 20081014
  3. OXYCODONE [Concomitant]
     Dates: start: 20080926
  4. IBUPROFEN TABLETS [Concomitant]
     Dates: start: 20080926
  5. METAMIZOLE [Concomitant]
     Dates: start: 20080926
  6. OMEPRAZOLE [Concomitant]
     Dates: start: 20080926
  7. METOCLOPRAMIDE [Concomitant]

REACTIONS (1)
  - RETINAL DETACHMENT [None]
